FAERS Safety Report 24707072 (Version 1)
Quarter: 2024Q4

REPORT INFORMATION
  Report Type: Spontaneous
  Country: US (occurrence: US)
  Receive Date: 20241206
  Receipt Date: 20241206
  Transmission Date: 20250115
  Serious: No
  Sender: BRISTOL-MYERS SQUIBB COMPANY
  Company Number: US-BRISTOL-MYERS SQUIBB COMPANY-2024-190076

PATIENT
  Age: 33 Year
  Sex: Male

DRUGS (9)
  1. COBENFY [Suspect]
     Active Substance: TROSPIUM CHLORIDE\XANOMELINE
     Indication: Schizophrenia
     Dosage: DOSE : 50/20MG AND 100/20MG;     FREQ : ONE CAPSULE TWICE A DAY
     Route: 048
     Dates: start: 20241126
  2. HALOPERIDOL [Concomitant]
     Active Substance: HALOPERIDOL
     Indication: Product used for unknown indication
  3. HALOPERIDOL [Concomitant]
     Active Substance: HALOPERIDOL
     Dates: start: 2020
  4. HALOPERIDOL [Concomitant]
     Active Substance: HALOPERIDOL
  5. HALOPERIDOL [Concomitant]
     Active Substance: HALOPERIDOL
     Dates: start: 20241203
  6. ZYPREXA [Concomitant]
     Active Substance: OLANZAPINE
     Indication: Product used for unknown indication
     Dates: start: 20241203
  7. INSULIN LISPRO [Concomitant]
     Active Substance: INSULIN LISPRO
     Indication: Product used for unknown indication
     Dosage: FIRST DOSE GIVEN IN RECENT HOSPITAL ADMISSION
     Dates: start: 20241203
  8. LISINOPRIL [Concomitant]
     Active Substance: LISINOPRIL
     Indication: Product used for unknown indication
     Dates: start: 20241203
  9. MELATONIN [Concomitant]
     Active Substance: MELATONIN
     Indication: Product used for unknown indication
     Dates: start: 20241203

REACTIONS (3)
  - Epistaxis [Unknown]
  - Inappropriate affect [Unknown]
  - Drug ineffective [Unknown]

NARRATIVE: CASE EVENT DATE: 20240101
